FAERS Safety Report 7806538-9 (Version None)
Quarter: 2011Q4

REPORT INFORMATION
  Report Type: 
  Country: None (occurrence: None)
  Receive Date: 20111011
  Receipt Date: 20110926
  Transmission Date: 20120403
  Serious: Yes (Hospitalization)
  Sender: FDA-Public Use
  Company Number: ES-TYCO HEALTHCARE/MALLINCKRODT-T201101464

PATIENT
  Age: 69 Year
  Sex: Male

DRUGS (5)
  1. OPTIRAY ULTRAJECT [Suspect]
     Indication: COMPUTERISED TOMOGRAM
     Dosage: 100 ML, SINGLE
     Route: 042
     Dates: start: 20110209, end: 20110209
  2. DOLQUINE [Concomitant]
     Indication: SYSTEMIC LUPUS ERYTHEMATOSUS
     Dosage: 400 MG, UNK
     Route: 048
     Dates: start: 20080101, end: 20110210
  3. AMPICILLIN SODIUM [Concomitant]
     Indication: LISTERIOSIS
     Dosage: UNK
     Dates: start: 20110207, end: 20110211
  4. RASILEZ [Concomitant]
     Indication: HYPERTENSION
     Dosage: 150 MG, UNK
     Route: 048
     Dates: start: 20080101, end: 20110210
  5. ASPIRIN [Concomitant]
     Indication: PROPHYLAXIS
     Dosage: 100 MG, UNK
     Route: 048
     Dates: start: 20080101, end: 20110210

REACTIONS (1)
  - RENAL FAILURE [None]
